FAERS Safety Report 9282826 (Version 3)
Quarter: 2013Q3

REPORT INFORMATION
  Report Type: Spontaneous
  Country: JP (occurrence: JP)
  Receive Date: 20130510
  Receipt Date: 20130708
  Transmission Date: 20140515
  Serious: Yes (Hospitalization)
  Sender: FDA-Public Use
  Company Number: JP-ROCHE-1223285

PATIENT
  Age: 55 Year
  Sex: Male
  Weight: 60 kg

DRUGS (6)
  1. TAMIFLU [Suspect]
     Indication: INFLUENZA
     Route: 048
     Dates: start: 20130502, end: 20130505
  2. CLARITHROMYCIN [Concomitant]
     Route: 048
     Dates: start: 20130502, end: 20130505
  3. ACETAMINOPHEN [Concomitant]
     Indication: INFLUENZA
     Dosage: DOSAGE IS UNCERTAIN, TAKEN AS NEEDED
     Route: 048
     Dates: start: 20130502, end: 20130505
  4. SISAAL [Concomitant]
     Indication: INFLUENZA
     Route: 048
     Dates: start: 20130502
  5. AMLODIN [Concomitant]
     Indication: HYPERTENSION
     Route: 048
  6. HYDROCHLOROTHIAZIDE [Concomitant]
     Indication: HYPERTENSION
     Route: 048

REACTIONS (5)
  - Altered state of consciousness [Recovered/Resolved]
  - Abnormal behaviour [Recovered/Resolved]
  - Suicide attempt [Recovered/Resolved]
  - Dysarthria [Unknown]
  - Dyslalia [Unknown]
